FAERS Safety Report 26194561 (Version 1)
Quarter: 2025Q4

REPORT INFORMATION
  Report Type: Spontaneous
  Country: US (occurrence: US)
  Receive Date: 20251224
  Receipt Date: 20251224
  Transmission Date: 20260117
  Serious: Yes (Death)
  Sender: Kenvue
  Company Number: US-KENVUE-20251205864

PATIENT
  Sex: Female

DRUGS (1)
  1. OCTINOXATE\OCTISALATE\OXYBENZONE [Suspect]
     Active Substance: OCTINOXATE\OCTISALATE\OXYBENZONE
     Indication: Product used for unknown indication
     Route: 048

REACTIONS (1)
  - Hypersensitivity [Fatal]
